FAERS Safety Report 6165625-4 (Version None)
Quarter: 2009Q2

REPORT INFORMATION
  Report Type: 
  Country: None (occurrence: None)
  Receive Date: 20090423
  Receipt Date: 20090415
  Transmission Date: 20091009
  Serious: Yes (Hospitalization)
  Sender: FDA-Public Use
  Company Number: US-ABBOTT-09P-163-0568339-00

PATIENT
  Sex: Female

DRUGS (3)
  1. DEPAKOTE ER [Suspect]
     Indication: MOOD SWINGS
     Route: 048
     Dates: start: 20090218
  2. DEPAKOTE ER [Suspect]
     Indication: DEMENTIA
  3. DEPAKOTE ER [Suspect]
     Indication: AGGRESSION

REACTIONS (3)
  - ATRIAL FIBRILLATION [None]
  - FATIGUE [None]
  - HAEMOGLOBIN DECREASED [None]
